FAERS Safety Report 5165642-7 (Version None)
Quarter: 2006Q4

REPORT INFORMATION
  Report Type: 
  Country: None (occurrence: None)
  Receive Date: 20061206
  Receipt Date: 20061124
  Transmission Date: 20070319
  Serious: Yes (Other)
  Sender: FDA-Public Use
  Company Number: 2006GB02142

PATIENT
  Age: 52 Year
  Sex: Female
  Weight: 92 kg

DRUGS (2)
  1. OMEPRAZOLE [Suspect]
     Indication: GASTRITIS
     Dosage: TAKEN INTERMITTENTLY
     Route: 048
     Dates: start: 20060101, end: 20061101
  2. CO-DYDRAMOL [Concomitant]
     Indication: JOINT INJURY
     Route: 048

REACTIONS (3)
  - DYSPHAGIA [None]
  - GLOSSODYNIA [None]
  - SWOLLEN TONGUE [None]
